FAERS Safety Report 23292394 (Version 1)
Quarter: 2023Q4

REPORT INFORMATION
  Report Type: Spontaneous
  Country: None (occurrence: NL)
  Receive Date: 20231213
  Receipt Date: 20231213
  Transmission Date: 20240109
  Serious: Yes (Congenital Anomaly)
  Sender: FDA-Public Use
  Company Number: NL-B.Braun Medical Inc.-2149266

PATIENT
  Sex: Male

DRUGS (5)
  1. ACETAMINOPHEN [Suspect]
     Active Substance: ACETAMINOPHEN
  2. AMOXICILLIN [Suspect]
     Active Substance: AMOXICILLIN
  3. LEVOTHYROXINE [Suspect]
     Active Substance: LEVOTHYROXINE
  4. EUTHYROX [Suspect]
     Active Substance: LEVOTHYROXINE SODIUM
  5. TRAMADOL [Suspect]
     Active Substance: TRAMADOL\TRAMADOL HYDROCHLORIDE

REACTIONS (2)
  - Diaphragmatic hernia [None]
  - Maternal exposure during pregnancy [None]
